FAERS Safety Report 19459753 (Version 4)
Quarter: 2021Q3

REPORT INFORMATION
  Report Type: Spontaneous
  Country: GB (occurrence: GB)
  Receive Date: 20210624
  Receipt Date: 20210716
  Transmission Date: 20211014
  Serious: Yes (Other)
  Sender: FDA-Public Use
  Company Number: GB-ORGANON-O2106GBR001730

PATIENT
  Age: 41 Year
  Sex: Female
  Weight: 115.21 kg

DRUGS (8)
  1. LANSOPRAZOL [Concomitant]
     Active Substance: LANSOPRAZOLE
     Dosage: UNK
  2. LANSOPRAZOL [Concomitant]
     Active Substance: LANSOPRAZOLE
     Dosage: UNK
  3. MOMETASONE FUROATE. [Suspect]
     Active Substance: MOMETASONE FUROATE
     Indication: UPPER-AIRWAY COUGH SYNDROME
  4. LEVOTHYROXINE SODIUM. [Concomitant]
     Active Substance: LEVOTHYROXINE SODIUM
     Indication: ILL-DEFINED DISORDER
     Dosage: UNK
  5. MOMETASONE FUROATE. [Suspect]
     Active Substance: MOMETASONE FUROATE
     Indication: ILL-DEFINED DISORDER
     Dosage: 2 SPRAYS UP EACH NOSTRIL. TWICE DAILY
     Route: 045
     Dates: start: 20210616, end: 20210618
  6. CLARITHROMYCIN ACCORD [Concomitant]
     Active Substance: CLARITHROMYCIN
     Indication: ILL-DEFINED DISORDER
     Dosage: UNK
  7. LANSOPRAZOL [Concomitant]
     Active Substance: LANSOPRAZOLE
     Indication: ILL-DEFINED DISORDER
     Dosage: UNK
  8. CITALOPRAM HYDROCHLORIDE [Concomitant]
     Active Substance: CITALOPRAM HYDROCHLORIDE
     Indication: ILL-DEFINED DISORDER
     Dosage: UNK

REACTIONS (1)
  - Headache [Unknown]

NARRATIVE: CASE EVENT DATE: 20210618
